FAERS Safety Report 4914855-5 (Version None)
Quarter: 2006Q1

REPORT INFORMATION
  Report Type: 
  Country: None (occurrence: None)
  Receive Date: 20060217
  Receipt Date: 20060203
  Transmission Date: 20060701
  Serious: Yes (Hospitalization)
  Sender: FDA-Public Use
  Company Number: DE-JNJFOC-20060201243

PATIENT
  Age: 80 Year
  Sex: Male

DRUGS (5)
  1. DURAGESIC-100 [Suspect]
     Route: 062
  2. DURAGESIC-100 [Suspect]
     Route: 062
  3. DURAGESIC-100 [Suspect]
     Route: 062
  4. STANGYL [Concomitant]
     Route: 048
  5. ANTIDEPRESSIVE AGENT [Concomitant]
     Indication: DEPRESSION
     Route: 048

REACTIONS (5)
  - ACUTE PSYCHOSIS [None]
  - AGGRESSION [None]
  - DRUG INEFFECTIVE [None]
  - INADEQUATE ANALGESIA [None]
  - SUICIDAL IDEATION [None]
